FAERS Safety Report 7507264-6 (Version None)
Quarter: 2011Q2

REPORT INFORMATION
  Report Type: 
  Country: None (occurrence: None)
  Receive Date: 20110526
  Receipt Date: 20110519
  Transmission Date: 20111010
  Serious: Yes (Hospitalization, Disabling)
  Sender: FDA-Public Use
  Company Number: US-GILEAD-2011-0035699

PATIENT
  Sex: Female

DRUGS (25)
  1. VITAMIN B COMPLEX                  /00003501/ [Concomitant]
  2. OS-CAL                             /00108001/ [Concomitant]
  3. NORCO [Concomitant]
  4. FERROUS SULFATE TAB [Concomitant]
  5. LETAIRIS [Suspect]
     Indication: PULMONARY ARTERIAL HYPERTENSION
     Route: 048
     Dates: start: 20101230
  6. COUMADIN [Concomitant]
  7. ASPIRIN [Concomitant]
  8. NEXIUM [Concomitant]
  9. LIDODERM [Concomitant]
  10. LEVOTHYROXINE SODIUM [Concomitant]
  11. XANAX [Concomitant]
  12. TEMAZEPAM [Concomitant]
  13. BENADRYL [Concomitant]
  14. ADVAIR DISKUS 100/50 [Concomitant]
  15. COLACE [Concomitant]
  16. REVATIO [Concomitant]
  17. LASIX [Concomitant]
  18. CALCET                             /00637401/ [Concomitant]
  19. NEPHRO-VITE                        /01801401/ [Concomitant]
  20. MUCINEX [Concomitant]
  21. SPIRIVA [Concomitant]
  22. ZOLOFT [Concomitant]
  23. ZESTRIL [Concomitant]
  24. LIPITOR [Concomitant]
  25. FLONASE [Concomitant]

REACTIONS (2)
  - ANAEMIA [None]
  - PLEURAL EFFUSION [None]
